APPROVED DRUG PRODUCT: METHYLERGONOVINE MALEATE
Active Ingredient: METHYLERGONOVINE MALEATE
Strength: 0.2MG
Dosage Form/Route: TABLET;ORAL
Application: A211483 | Product #001 | TE Code: AB
Applicant: AMNEAL PHARMACEUTICALS OF NEW YORK LLC
Approved: Sep 10, 2018 | RLD: No | RS: No | Type: RX